FAERS Safety Report 15941649 (Version 1)
Quarter: 2019Q1

REPORT INFORMATION
  Report Type: Spontaneous
  Country: US (occurrence: US)
  Receive Date: 20190209
  Receipt Date: 20190209
  Transmission Date: 20190417
  Serious: Yes (Other)
  Sender: FDA-Public Use
  Company Number: None

PATIENT
  Age: 57 Year
  Sex: Male
  Weight: 177.75 kg

DRUGS (10)
  1. SPIRONOLACTONE. [Concomitant]
     Active Substance: SPIRONOLACTONE
  2. AMIODARONE [Concomitant]
     Active Substance: AMIODARONE
  3. ATORVASTATIN [Concomitant]
     Active Substance: ATORVASTATIN
  4. FUROSEMIDE. [Concomitant]
     Active Substance: FUROSEMIDE
  5. LISINOPRIL. [Concomitant]
     Active Substance: LISINOPRIL
  6. IRON [Concomitant]
     Active Substance: IRON
  7. SUTENT [Suspect]
     Active Substance: SUNITINIB MALATE
     Indication: RENAL CANCER
     Route: 048
     Dates: start: 20180921
  8. NAPROXEN. [Concomitant]
     Active Substance: NAPROXEN
  9. MULTIVITAMINS [Concomitant]
     Active Substance: VITAMINS
  10. CARVEDILOL. [Concomitant]
     Active Substance: CARVEDILOL

REACTIONS (1)
  - Disease progression [None]
